FAERS Safety Report 6931810-4 (Version None)
Quarter: 2010Q3

REPORT INFORMATION
  Report Type: 
  Country: None (occurrence: None)
  Receive Date: 20100819
  Receipt Date: 20100810
  Transmission Date: 20110219
  Serious: No
  Sender: FDA-Public Use
  Company Number: US-BIOGENIDEC-2010BI027476

PATIENT
  Age: 55 Year
  Sex: Male

DRUGS (3)
  1. AVONEX [Suspect]
     Indication: MULTIPLE SCLEROSIS
     Route: 030
     Dates: start: 20100727, end: 20100727
  2. AVONEX [Suspect]
     Route: 030
     Dates: start: 20100808, end: 20100808
  3. AVONEX [Suspect]
     Dates: start: 20100808

REACTIONS (1)
  - DIPLEGIA [None]
